FAERS Safety Report 13076955 (Version 1)
Quarter: 2016Q4

REPORT INFORMATION
  Report Type: Spontaneous
  Country: BR (occurrence: BR)
  Receive Date: 20161230
  Receipt Date: 20161230
  Transmission Date: 20170207
  Serious: Yes (Other)
  Sender: FDA-Public Use
  Company Number: BR-PFIZER INC-2016600517

PATIENT
  Age: 62 Year
  Sex: Female

DRUGS (3)
  1. LOSARTAN POTASSIUM. [Suspect]
     Active Substance: LOSARTAN POTASSIUM
     Indication: HYPERTENSION
  2. TRAVATAN [Suspect]
     Active Substance: TRAVOPROST
     Indication: GLAUCOMA
     Dosage: 1 DROP IN THE RIGHT AND LEFT EYE AT NIGHT
     Route: 047
  3. XALATAN [Suspect]
     Active Substance: LATANOPROST
     Indication: GLAUCOMA
     Dosage: 1 DROP IN EACH EYE
     Route: 047

REACTIONS (5)
  - Eye pain [Recovered/Resolved]
  - Ear haemorrhage [Recovering/Resolving]
  - Deafness [Not Recovered/Not Resolved]
  - Visual impairment [Unknown]
  - Retinal vascular occlusion [Unknown]
